FAERS Safety Report 8983140 (Version 1)
Quarter: 2012Q4

REPORT INFORMATION
  Report Type: Report from Study
  Country: ES (occurrence: ES)
  Receive Date: 20121224
  Receipt Date: 20121224
  Transmission Date: 20130627
  Serious: Yes (Life-Threatening)
  Sender: FDA-Public Use
  Company Number: ES-ASTELLAS-2012US012614

PATIENT
  Age: 68 Year
  Sex: Male

DRUGS (5)
  1. ERLOTINIB TABLET [Suspect]
     Indication: PANCREATIC CARCINOMA
     Dosage: 100 mg, UID/QD
     Route: 048
     Dates: start: 20120111
  2. GEMCITABINE [Suspect]
     Indication: PANCREATIC CARCINOMA
     Dosage: 72 mg, Unknown/D
     Route: 042
     Dates: start: 20120111
  3. NOVORAPID [Concomitant]
     Indication: DIABETES MELLITUS
     Dosage: UNK
     Route: 058
     Dates: start: 2011
  4. MAGNOGENE [Concomitant]
     Indication: HYPOMAGNESAEMIA
     Dosage: 3 C, UID/QD
     Route: 048
     Dates: start: 20120207
  5. BOI K [Concomitant]
     Indication: HYPOMAGNESAEMIA
     Dosage: UNK
     Route: 048
     Dates: start: 20120515

REACTIONS (1)
  - Thrombocytopenia [Recovered/Resolved]
